FAERS Safety Report 4820976-8 (Version None)
Quarter: 2005Q4

REPORT INFORMATION
  Report Type: 
  Country: None (occurrence: None)
  Receive Date: 20051103
  Receipt Date: 20051019
  Transmission Date: 20060501
  Serious: Yes (Death)
  Sender: FDA-Public Use
  Company Number: L05-USA-03935-18

PATIENT
  Age: 83 Year

DRUGS (2)
  1. DILTIAZEM HCL [Suspect]
  2. ACETYLSALICYLIC ACID SRT [Suspect]

REACTIONS (2)
  - COMPLETED SUICIDE [None]
  - MULTIPLE DRUG OVERDOSE [None]
